FAERS Safety Report 19775883 (Version 1)
Quarter: 2021Q3

REPORT INFORMATION
  Report Type: Other
  Country: CA (occurrence: CA)
  Receive Date: 20210902
  Receipt Date: 20210902
  Transmission Date: 20211014
  Serious: Yes (Other)
  Sender: FDA-Public Use
  Company Number: CA-CELLTRION INC.-2021CA011715

PATIENT

DRUGS (4)
  1. DIPHENHYDRAMINE HYDROCHLORIDE;LIDOCAINE;NYSTATIN [Concomitant]
     Indication: PRODUCT USED FOR UNKNOWN INDICATION
     Dosage: 50 MILLIGRAM
     Route: 048
  2. ACETAMINOPHEN;BUTALBITAL [Concomitant]
     Active Substance: ACETAMINOPHEN\BUTALBITAL
     Indication: PRODUCT USED FOR UNKNOWN INDICATION
     Dosage: 650 MILLIGRAM
     Route: 048
  3. METHYLPREDNISOLONE. [Concomitant]
     Active Substance: METHYLPREDNISOLONE
     Indication: PRODUCT USED FOR UNKNOWN INDICATION
     Dosage: 100 MILLIGRAM
     Route: 042
  4. RITUXIMAB. [Suspect]
     Active Substance: RITUXIMAB
     Indication: MIXED CONNECTIVE TISSUE DISEASE
     Dosage: 500 MILLIGRAM
     Route: 042

REACTIONS (9)
  - Radial pulse [Recovered/Resolved]
  - Oropharyngeal pain [Recovered/Resolved]
  - Dyspnoea [Recovered/Resolved]
  - Off label use [Unknown]
  - Fear of injection [Recovered/Resolved]
  - Off label use [Recovered/Resolved]
  - Syncope [Recovered/Resolved]
  - Hypoaesthesia [Recovered/Resolved]
  - Blood pressure increased [Recovered/Resolved]
